FAERS Safety Report 9704518 (Version 5)
Quarter: 2014Q2

REPORT INFORMATION
  Report Type: Spontaneous
  Country: AR (occurrence: AR)
  Receive Date: 20131122
  Receipt Date: 20140619
  Transmission Date: 20141212
  Serious: Yes (Hospitalization, Other)
  Sender: FDA-Public Use
  Company Number: AR-AMGEN-ARGSP2013082127

PATIENT
  Age: 53 Year
  Sex: Female

DRUGS (2)
  1. ENBREL [Suspect]
     Indication: RHEUMATOID ARTHRITIS
     Dosage: 25 MG, WEEKLY
     Route: 065
     Dates: start: 20070808
  2. ENBREL [Suspect]
     Dosage: 50 MG, WEEKLY
     Route: 065
     Dates: start: 201311

REACTIONS (6)
  - Abnormal sensation in eye [Recovered/Resolved]
  - Asthenopia [Not Recovered/Not Resolved]
  - Corneal lesion [Recovered/Resolved]
  - Eye disorder [Recovered/Resolved]
  - Arthritis [Recovering/Resolving]
  - Eye disorder [Recovering/Resolving]
